FAERS Safety Report 17307523 (Version 3)
Quarter: 2020Q3

REPORT INFORMATION
  Report Type: Report from Study
  Country: US (occurrence: US)
  Receive Date: 20200123
  Receipt Date: 20200707
  Transmission Date: 20201102
  Serious: Yes (Life-Threatening, Other)
  Sender: FDA-Public Use
  Company Number: NVSC2020US012915

PATIENT
  Age: 9 Year
  Sex: Male

DRUGS (3)
  1. CYCLOPHOSPHAMIDE. [Concomitant]
     Active Substance: CYCLOPHOSPHAMIDE
     Indication: CHEMOTHERAPY
     Dosage: UNK
     Route: 065
  2. KYMRIAH [Suspect]
     Active Substance: TISAGENLECLEUCEL
     Indication: B-CELL TYPE ACUTE LEUKAEMIA
     Dosage: UNK UNK, ONCE/SINGLE
     Route: 041
  3. FLUDARABINE [Concomitant]
     Active Substance: FLUDARABINE PHOSPHATE
     Indication: CHEMOTHERAPY
     Dosage: UNK
     Route: 065

REACTIONS (16)
  - White blood cell count decreased [Unknown]
  - Hypogammaglobulinaemia [Unknown]
  - Haematocrit decreased [Unknown]
  - Acute lymphocytic leukaemia recurrent [Not Recovered/Not Resolved]
  - Haemoglobin decreased [Unknown]
  - Hypotension [Unknown]
  - Tumour lysis syndrome [Unknown]
  - Cytokine release syndrome [Recovered/Resolved]
  - Neurotoxicity [Recovered/Resolved]
  - Lymphocyte count decreased [Unknown]
  - Confusional state [Unknown]
  - Pyrexia [Unknown]
  - Hypoxia [Unknown]
  - Malignant neoplasm progression [Not Recovered/Not Resolved]
  - Neutrophil count decreased [Unknown]
  - Platelet count decreased [Unknown]

NARRATIVE: CASE EVENT DATE: 20200116
